FAERS Safety Report 10912064 (Version 1)
Quarter: 2015Q1

REPORT INFORMATION
  Report Type: Spontaneous
  Country: US (occurrence: None)
  Receive Date: 20150310
  Receipt Date: 20150310
  Transmission Date: 20150721
  Serious: Yes (Hospitalization)
  Sender: FDA-Public Use
  Company Number: None

PATIENT
  Age: 31 Year
  Sex: Female
  Weight: 49 kg

DRUGS (1)
  1. TAMOXIFEN [Suspect]
     Active Substance: TAMOXIFEN
     Dates: end: 20141214

REACTIONS (12)
  - Hypophagia [None]
  - Abdominal pain [None]
  - Nausea [None]
  - Small intestinal obstruction [None]
  - Vomiting [None]
  - Pain [None]
  - Dyspnoea [None]
  - Tachycardia [None]
  - Failure to thrive [None]
  - Oedema [None]
  - Hypotension [None]
  - Sepsis [None]

NARRATIVE: CASE EVENT DATE: 20150225
